FAERS Safety Report 7368764-5 (Version None)
Quarter: 2011Q1

REPORT INFORMATION
  Report Type: 
  Country: None (occurrence: None)
  Receive Date: 20110314
  Receipt Date: 20110228
  Transmission Date: 20110831
  Serious: Yes (Hospitalization, Other)
  Sender: FDA-Public Use
  Company Number: DSA_45135_2011

PATIENT
  Sex: Female

DRUGS (2)
  1. NITOMAN TAB [Suspect]
     Indication: PRODUCT USED FOR UNKNOWN INDICATION
     Dosage: (25 MG TID ORAL)
     Route: 048
     Dates: start: 20110121, end: 20110217
  2. ESCITALOPRAM [Concomitant]

REACTIONS (1)
  - HALLUCINATION, AUDITORY [None]
